FAERS Safety Report 16860926 (Version 1)
Quarter: 2019Q3

REPORT INFORMATION
  Report Type: Spontaneous
  Country: CA (occurrence: CA)
  Receive Date: 20190927
  Receipt Date: 20190927
  Transmission Date: 20191005
  Serious: Yes (Other)
  Sender: FDA-Public Use
  Company Number: CA-SA-2019SA223353

PATIENT
  Sex: Female

DRUGS (7)
  1. IMURAN [Suspect]
     Active Substance: AZATHIOPRINE
     Dosage: UNK, UNK
     Route: 065
  2. CELECOXIB. [Suspect]
     Active Substance: CELECOXIB
     Indication: PAIN
     Dosage: UNK UNK, PRN
     Route: 065
  3. METHOTREXATE. [Suspect]
     Active Substance: METHOTREXATE
     Dosage: UNK UNK, UNK
     Route: 065
  4. ENBREL [Suspect]
     Active Substance: ETANERCEPT
     Dosage: UNK, UNK
     Route: 065
  5. ARAVA [Suspect]
     Active Substance: LEFLUNOMIDE
     Dosage: 20 MG, QD
     Route: 065
  6. PLAQUENIL [Suspect]
     Active Substance: HYDROXYCHLOROQUINE SULFATE
     Dosage: UNK UNK, UNK
     Route: 065
  7. XELJANZ [Suspect]
     Active Substance: TOFACITINIB CITRATE
     Indication: RHEUMATOID ARTHRITIS
     Dosage: 5 MG, BID
     Route: 048
     Dates: start: 20190830

REACTIONS (4)
  - Feeling abnormal [Unknown]
  - Disability [Unknown]
  - Rheumatoid arthritis [Unknown]
  - Thirst [Not Recovered/Not Resolved]
